FAERS Safety Report 15192483 (Version 1)
Quarter: 2018Q3

REPORT INFORMATION
  Report Type: Spontaneous
  Country: PT (occurrence: PT)
  Receive Date: 20180725
  Receipt Date: 20180725
  Transmission Date: 20181010
  Serious: Yes (Other)
  Sender: FDA-Public Use
  Company Number: PT-ALEMBIC PHARMACUETICALS LIMITED-2018SCAL000530

PATIENT

DRUGS (4)
  1. BIPERIDEN [Suspect]
     Active Substance: BIPERIDEN
     Indication: TREMOR
     Dosage: UNK
  2. QUETIAPINE FUMARATE. [Suspect]
     Active Substance: QUETIAPINE FUMARATE
     Indication: INSOMNIA
     Dosage: 150 MILLIGRAM, QD
  3. TRAZODONE [Suspect]
     Active Substance: TRAZODONE HYDROCHLORIDE
     Indication: INSOMNIA
     Dosage: 150 MILLIGRAM
  4. SERTRALINE [Suspect]
     Active Substance: SERTRALINE HYDROCHLORIDE
     Indication: DEPRESSIVE SYMPTOM
     Dosage: 100 MILLIGRAM

REACTIONS (10)
  - Disorientation [Recovering/Resolving]
  - Hyperreflexia [Recovering/Resolving]
  - Agitation [Recovering/Resolving]
  - Depressive symptom [Recovering/Resolving]
  - Serotonin syndrome [Recovering/Resolving]
  - Disorganised speech [Recovering/Resolving]
  - Cogwheel rigidity [Recovering/Resolving]
  - Confusional state [Recovering/Resolving]
  - Tremor [Recovering/Resolving]
  - Drug interaction [Unknown]
